FAERS Safety Report 5065770-0 (Version None)
Quarter: 2006Q3

REPORT INFORMATION
  Report Type: 
  Country: None (occurrence: None)
  Receive Date: 20060731
  Receipt Date: 20060717
  Transmission Date: 20061208
  Serious: Yes (Hospitalization)
  Sender: FDA-Public Use
  Company Number: JP-ROCHE-455899

PATIENT
  Age: 71 Year
  Sex: Male
  Weight: 76.5 kg

DRUGS (1)
  1. TICLOPIDINE HYDROCHLORIDE [Suspect]
     Indication: ANTICOAGULANT THERAPY
     Route: 065

REACTIONS (15)
  - ABDOMINAL PAIN [None]
  - ARTERIAL OCCLUSIVE DISEASE [None]
  - BLOOD PRESSURE SYSTOLIC INCREASED [None]
  - BLUE TOE SYNDROME [None]
  - CARDIAC HYPERTROPHY [None]
  - CREATININE RENAL CLEARANCE DECREASED [None]
  - ENTERITIS [None]
  - EOSINOPHIL COUNT INCREASED [None]
  - GASTROINTESTINAL DISORDER [None]
  - HEPATIC FUNCTION ABNORMAL [None]
  - MELAENA [None]
  - RENAL DISORDER [None]
  - RENAL IMPAIRMENT [None]
  - THERAPY NON-RESPONDER [None]
  - THROMBOSIS [None]
